FAERS Safety Report 17415251 (Version 1)
Quarter: 2020Q1

REPORT INFORMATION
  Report Type: Report from Study
  Country: AU (occurrence: AU)
  Receive Date: 20200213
  Receipt Date: 20200213
  Transmission Date: 20200409
  Serious: Yes (Other)
  Sender: FDA-Public Use
  Company Number: AU-TOLMAR, INC.-20AU019922

PATIENT

DRUGS (1)
  1. ELIGARD [Suspect]
     Active Substance: LEUPROLIDE ACETATE
     Indication: PROSTATE CANCER
     Dosage: 7.5 MG, Q 1 MONTH
     Route: 058

REACTIONS (5)
  - Diabetes mellitus inadequate control [Unknown]
  - Hot flush [Unknown]
  - Mental fatigue [Unknown]
  - Disturbance in attention [Unknown]
  - Fatigue [Unknown]
